FAERS Safety Report 24241343 (Version 2)
Quarter: 2024Q3

REPORT INFORMATION
  Report Type: Spontaneous
  Country: NL (occurrence: NL)
  Receive Date: 20240823
  Receipt Date: 20240826
  Transmission Date: 20241016
  Serious: Yes (Life-Threatening)
  Sender: BIOVITRUM
  Company Number: None

PATIENT
  Age: 58 Year
  Sex: Male
  Weight: 99 kg

DRUGS (2)
  1. ANAKINRA [Suspect]
     Active Substance: ANAKINRA
     Indication: Inflammation
     Dosage: 1 X DAILY FOR FIVE DAYS, SEIZURE-WISE
     Dates: start: 20220314, end: 20220316
  2. ANAKINRA [Suspect]
     Active Substance: ANAKINRA
     Indication: Pyrexia

REACTIONS (5)
  - Blood pressure decreased [Recovered/Resolved]
  - Rash maculo-papular [Recovered/Resolved]
  - Swollen tongue [Recovered/Resolved]
  - Pruritus [Recovered/Resolved]
  - Pharyngeal swelling [Recovered/Resolved]
